FAERS Safety Report 18198548 (Version 1)
Quarter: 2020Q3

REPORT INFORMATION
  Report Type: Spontaneous
  Country: AU (occurrence: AU)
  Receive Date: 20200826
  Receipt Date: 20200826
  Transmission Date: 20201103
  Serious: Yes (Hospitalization)
  Sender: FDA-Public Use
  Company Number: AU-MYLANLABS-2020M1074247

PATIENT
  Age: 28 Year
  Sex: Male

DRUGS (3)
  1. QUETIAPINE. [Suspect]
     Active Substance: QUETIAPINE
     Indication: DEPRESSION
     Dosage: 200 MILLIGRAM, QD AT NIGHT
     Route: 048
  2. QUETIAPINE. [Suspect]
     Active Substance: QUETIAPINE
     Dosage: RECEIVED MORE THAN HIS USUAL DOSE OF QUETIAPINE (AROUND 1200MG)
     Route: 048
  3. CLOMIPRAMINE [Concomitant]
     Active Substance: CLOMIPRAMINE
     Indication: OBSESSIVE-COMPULSIVE DISORDER
     Dosage: 150 MILLIGRAM, QD AT NIGHT
     Route: 065

REACTIONS (8)
  - Intentional overdose [Recovering/Resolving]
  - Compartment syndrome [Recovering/Resolving]
  - Neurological symptom [Recovering/Resolving]
  - Acute kidney injury [Recovered/Resolved]
  - Myositis [Unknown]
  - Rhabdomyolysis [Unknown]
  - Brachial plexus injury [Recovering/Resolving]
  - Intentional product misuse [Recovering/Resolving]
